FAERS Safety Report 25189821 (Version 1)
Quarter: 2025Q2

REPORT INFORMATION
  Report Type: Spontaneous
  Country: US (occurrence: None)
  Receive Date: 20250411
  Receipt Date: 20250411
  Transmission Date: 20250716
  Serious: No
  Sender: FDA-CTU
  Company Number: None

PATIENT
  Age: 46 Year
  Sex: Male
  Weight: 83.25 kg

DRUGS (10)
  1. ROSUVASTATIN [Suspect]
     Active Substance: ROSUVASTATIN
     Indication: Type IIa hyperlipidaemia
     Dosage: OTHER QUANTITY : 1 TABLET(S);?FREQUENCY : DAILY;?
     Route: 048
  2. Immitrex [Concomitant]
  3. MOTRIN [Concomitant]
     Active Substance: IBUPROFEN
  4. METAXALONE [Concomitant]
     Active Substance: METAXALONE
  5. VASCEPA [Concomitant]
     Active Substance: ICOSAPENT ETHYL
  6. FENOFIBRATE [Concomitant]
     Active Substance: FENOFIBRATE
  7. CELEXA [Concomitant]
     Active Substance: CITALOPRAM HYDROBROMIDE
  8. ALLEGRA [Concomitant]
     Active Substance: FEXOFENADINE HYDROCHLORIDE
  9. Vitamins B12 [Concomitant]
  10. VITAMIN D3 [Concomitant]
     Active Substance: CHOLECALCIFEROL

REACTIONS (2)
  - Memory impairment [None]
  - Disorientation [None]

NARRATIVE: CASE EVENT DATE: 20250411
